FAERS Safety Report 16179470 (Version 2)
Quarter: 2019Q2

REPORT INFORMATION
  Report Type: Spontaneous
  Country: US (occurrence: US)
  Receive Date: 20190410
  Receipt Date: 20190521
  Transmission Date: 20190711
  Serious: Yes (Hospitalization)
  Sender: FDA-Public Use
  Company Number: US-BAUSCH-BL-2019-010276

PATIENT
  Sex: Male

DRUGS (3)
  1. VYZULTA [Suspect]
     Active Substance: LATANOPROSTENE BUNOD
     Indication: GLAUCOMA
     Dosage: QHS - EVERY BEDTIME, BOTH EYES
     Route: 047
     Dates: start: 2018, end: 2018
  2. VITAMIN NOS [Concomitant]
     Active Substance: VITAMINS
     Indication: PRODUCT USED FOR UNKNOWN INDICATION
  3. VYZULTA [Suspect]
     Active Substance: LATANOPROSTENE BUNOD
     Dosage: QHS - EVERY BEDTIME, BOTH EYES
     Route: 047
     Dates: start: 2019

REACTIONS (4)
  - Lower limb fracture [Not Recovered/Not Resolved]
  - Ocular hyperaemia [Unknown]
  - Drug ineffective [Unknown]
  - Road traffic accident [Unknown]

NARRATIVE: CASE EVENT DATE: 2018
